FAERS Safety Report 15848503 (Version 1)
Quarter: 2019Q1

REPORT INFORMATION
  Report Type: Other
  Country: US (occurrence: US)
  Receive Date: 20190121
  Receipt Date: 20190121
  Transmission Date: 20190417
  Serious: Yes (Other)
  Sender: FDA-Public Use
  Company Number: US-DENTSPLY-2019SCDP000021

PATIENT
  Age: 31 Year
  Sex: Male
  Weight: 80 kg

DRUGS (20)
  1. GABAPENTIN. [Concomitant]
     Active Substance: GABAPENTIN
     Indication: CANCER PAIN
     Dosage: UNK
  2. HYDROMORPHONE                      /00080902/ [Concomitant]
     Active Substance: HYDROMORPHONE HYDROCHLORIDE
     Indication: WOUND COMPLICATION
  3. METHADONE HYDROCHLORIDE. [Concomitant]
     Active Substance: METHADONE HYDROCHLORIDE
     Indication: WOUND COMPLICATION
  4. NIVOLUMAB BMS [Concomitant]
     Active Substance: NIVOLUMAB
     Indication: SQUAMOUS CELL CARCINOMA
     Dosage: UNK
  5. PREDNISONE                         /00044702/ [Concomitant]
     Active Substance: PREDNISONE
     Indication: PYODERMA GANGRENOSUM
     Dosage: 0.6 MG/KG, UNK
  6. PARACETAMOL [Concomitant]
     Active Substance: ACETAMINOPHEN
     Indication: WOUND COMPLICATION
  7. GABAPENTIN. [Concomitant]
     Active Substance: GABAPENTIN
     Indication: WOUND COMPLICATION
  8. MORPHINE [Concomitant]
     Active Substance: MORPHINE
     Indication: WOUND COMPLICATION
     Dosage: UNK
  9. LIDOCAINE. [Suspect]
     Active Substance: LIDOCAINE
     Indication: CANCER PAIN
     Dosage: 24 MG, 1 HOUR (INFUSION)
     Route: 042
  10. LIDOCAINE. [Suspect]
     Active Substance: LIDOCAINE
     Dosage: 36 MG, 1 HOUR (INFUSION)
     Route: 042
  11. HYDROMORPHONE                      /00080902/ [Concomitant]
     Active Substance: HYDROMORPHONE HYDROCHLORIDE
     Indication: CANCER PAIN
     Dosage: UNK
  12. KETAMINE                           /00171202/ [Concomitant]
     Active Substance: KETAMINE
     Indication: MUSCULOSKELETAL PAIN
     Dosage: 5 MG, UNK
  13. LIDOCAINE. [Suspect]
     Active Substance: LIDOCAINE
     Dosage: 48 MG,2 DAY 1 HOUR (INFUSION)
     Route: 042
  14. METHADONE HYDROCHLORIDE. [Concomitant]
     Active Substance: METHADONE HYDROCHLORIDE
     Indication: CANCER PAIN
     Dosage: UNK
  15. PARACETAMOL [Concomitant]
     Active Substance: ACETAMINOPHEN
     Indication: CANCER PAIN
     Dosage: UNK
  16. FENTANYL. [Concomitant]
     Active Substance: FENTANYL
     Indication: WOUND COMPLICATION
  17. MORPHINE [Concomitant]
     Active Substance: MORPHINE
     Indication: CANCER PAIN
  18. LIDOCAINE. [Suspect]
     Active Substance: LIDOCAINE
     Indication: WOUND COMPLICATION
     Dosage: 150 MG, BID (INJECTION)
     Route: 042
  19. FENTANYL. [Concomitant]
     Active Substance: FENTANYL
     Indication: CANCER PAIN
     Dosage: UNK
  20. LIDOCAINE. [Suspect]
     Active Substance: LIDOCAINE
     Dosage: 60 MG,FOR 6 DAYS 1 HOUR (INFUSION)
     Route: 042

REACTIONS (3)
  - Drug level increased [None]
  - Lethargy [None]
  - Confusional state [None]
